FAERS Safety Report 7972513-7 (Version None)
Quarter: 2011Q4

REPORT INFORMATION
  Report Type: 
  Country: None (occurrence: None)
  Receive Date: 20111122
  Receipt Date: 20110810
  Transmission Date: 20120403
  Serious: No
  Sender: FDA-Public Use
  Company Number: PHHY2011US32354

PATIENT
  Age: 40 Year
  Sex: Female

DRUGS (1)
  1. GILENYA [Suspect]
     Indication: MULTIPLE SCLEROSIS
     Dosage: 0.5 MG, QD, ORAL
     Route: 048
     Dates: start: 20110321

REACTIONS (6)
  - HEADACHE [None]
  - PARAESTHESIA [None]
  - XANTHOPSIA [None]
  - DIZZINESS [None]
  - NAUSEA [None]
  - LETHARGY [None]
